FAERS Safety Report 5806935-7 (Version None)
Quarter: 2008Q3

REPORT INFORMATION
  Report Type: 
  Country: None (occurrence: None)
  Receive Date: 20080711
  Receipt Date: 20080630
  Transmission Date: 20090109
  Serious: Yes (Other)
  Sender: FDA-Public Use
  Company Number: JP-JNJFOC-20080700816

PATIENT
  Age: 80 Year
  Sex: Female

DRUGS (8)
  1. FINIBAX [Suspect]
     Indication: PNEUMONIA
     Route: 041
  2. AVELOX [Suspect]
     Indication: PNEUMONIA
     Route: 048
  3. PANTOSIN [Concomitant]
     Route: 048
  4. PL [Concomitant]
     Indication: PNEUMONIA
     Route: 048
  5. MAGNESIUM OXIDE [Concomitant]
     Route: 048
  6. ELCITONIN [Concomitant]
     Route: 030
  7. GASMOTIN [Concomitant]
     Route: 048
  8. CALONAL [Concomitant]
     Indication: PNEUMONIA
     Route: 048

REACTIONS (3)
  - ANAEMIA [None]
  - DRUG INEFFECTIVE [None]
  - WHITE BLOOD CELL COUNT DECREASED [None]
